FAERS Safety Report 6581148-2 (Version None)
Quarter: 2010Q1

REPORT INFORMATION
  Report Type: 
  Country: None (occurrence: None)
  Receive Date: 20100215
  Receipt Date: 20100208
  Transmission Date: 20100710
  Serious: Yes (Other)
  Sender: FDA-Public Use
  Company Number: US-MYLANLABS-2010S1000641

PATIENT
  Age: 67 Year
  Sex: Female
  Weight: 84.1 kg

DRUGS (13)
  1. KEPPRA [Suspect]
     Indication: CONVULSION
     Route: 048
     Dates: start: 20030101, end: 20090901
  2. LEVETIRACETAM [Suspect]
     Indication: CONVULSION
     Route: 048
     Dates: start: 20090901, end: 20090101
  3. LEVETIRACETAM [Suspect]
     Route: 048
     Dates: start: 20090101, end: 20090101
  4. LEVETIRACETAM [Suspect]
     Route: 048
     Dates: start: 20090101, end: 20090101
  5. SYNTHROID [Concomitant]
     Indication: HYPOTHYROIDISM
     Route: 048
     Dates: start: 20030101
  6. METOPROLOL TARTRATE [Concomitant]
     Indication: BLOOD PRESSURE INCREASED
     Route: 048
     Dates: start: 20050101
  7. SIMVASTATIN [Concomitant]
     Indication: BLOOD CHOLESTEROL
     Route: 048
     Dates: start: 20030101
  8. DIOVAN [Concomitant]
     Indication: BLOOD PRESSURE INCREASED
     Route: 048
     Dates: start: 20050101
  9. PROTONIX [Concomitant]
     Route: 048
     Dates: start: 20050101
  10. ASPIRIN [Concomitant]
     Indication: STENT PLACEMENT
  11. NOVOLOG [Concomitant]
     Indication: DIABETES MELLITUS
     Dosage: BEFORE MEALS
     Route: 058
  12. LANTUS [Concomitant]
     Indication: DIABETES MELLITUS
     Route: 058
  13. PAXIL [Concomitant]
     Indication: DEPRESSION
     Dates: start: 20091201

REACTIONS (3)
  - ARTERIAL REPAIR [None]
  - CAROTID ARTERY OCCLUSION [None]
  - GRAND MAL CONVULSION [None]
